FAERS Safety Report 6980187-7 (Version None)
Quarter: 2010Q3

REPORT INFORMATION
  Report Type: 
  Country: None (occurrence: None)
  Receive Date: 20100824
  Receipt Date: 20100624
  Transmission Date: 20110219
  Serious: No
  Sender: FDA-Public Use
  Company Number: 310838

PATIENT
  Age: 55 Year
  Sex: Female

DRUGS (5)
  1. VICTOZA [Suspect]
     Indication: PRODUCT USED FOR UNKNOWN INDICATION
     Dosage: 0.6 MG, QD, SUBCUTANEOUS ; 1.2 MG, QD, SUBCUTANEOUS ; 1.8 MG, QD, SUBCUTANEOUS
     Route: 058
     Dates: start: 20100415, end: 20100422
  2. VICTOZA [Suspect]
     Indication: PRODUCT USED FOR UNKNOWN INDICATION
     Dosage: 0.6 MG, QD, SUBCUTANEOUS ; 1.2 MG, QD, SUBCUTANEOUS ; 1.8 MG, QD, SUBCUTANEOUS
     Route: 058
     Dates: start: 20100401
  3. BYETTA [Suspect]
     Indication: PRODUCT USED FOR UNKNOWN INDICATION
     Dosage: 10 UG, BID, SUBCUTANEOUS ; 5 UG, SUBCUTANEOUS
     Route: 058
     Dates: start: 20050101, end: 20100331
  4. BYETTA [Suspect]
     Indication: PRODUCT USED FOR UNKNOWN INDICATION
     Dosage: 10 UG, BID, SUBCUTANEOUS ; 5 UG, SUBCUTANEOUS
     Route: 058
     Dates: start: 20100422
  5. INSULIN (INSULIN) [Concomitant]

REACTIONS (3)
  - ADVERSE DRUG REACTION [None]
  - DERMATITIS [None]
  - REFLUX GASTRITIS [None]
